FAERS Safety Report 25213935 (Version 1)
Quarter: 2025Q2

REPORT INFORMATION
  Report Type: Spontaneous
  Country: FR (occurrence: FR)
  Receive Date: 20250418
  Receipt Date: 20250418
  Transmission Date: 20250716
  Serious: Yes (Death, Other)
  Sender: REGENERON
  Company Number: FR-REGENERON PHARMACEUTICALS, INC.-2025-066154

PATIENT
  Age: 70 Year
  Sex: Male

DRUGS (2)
  1. CEMIPLIMAB [Suspect]
     Active Substance: CEMIPLIMAB
     Indication: Squamous cell carcinoma of skin
     Dates: start: 20200501
  2. ABATACEPT [Suspect]
     Active Substance: ABATACEPT
     Indication: Acute respiratory failure

REACTIONS (4)
  - Acute respiratory failure [Fatal]
  - Interstitial lung disease [Unknown]
  - Myocarditis [Unknown]
  - Lung infiltration [Unknown]
